FAERS Safety Report 6829338-5 (Version None)
Quarter: 2010Q3

REPORT INFORMATION
  Report Type: 
  Country: None (occurrence: None)
  Receive Date: 20100709
  Receipt Date: 20070302
  Transmission Date: 20110219
  Serious: No
  Sender: FDA-Public Use
  Company Number: US-PFIZER INC-2007017160

PATIENT
  Sex: Female
  Weight: 97.52 kg

DRUGS (8)
  1. CHANTIX [Suspect]
     Indication: SMOKING CESSATION THERAPY
     Dates: start: 20070223
  2. METHOCARBAMOL [Concomitant]
     Indication: ARTHRITIS
  3. MOBIC [Concomitant]
     Indication: ARTHRITIS
  4. FLONASE [Concomitant]
  5. SEREVENT [Concomitant]
  6. VITAMINS [Concomitant]
  7. DIPENTUM [Concomitant]
     Indication: COLITIS ULCERATIVE
  8. WELLBUTRIN SR [Concomitant]

REACTIONS (2)
  - ANXIETY [None]
  - NAUSEA [None]
